FAERS Safety Report 21180767 (Version 4)
Quarter: 2025Q2

REPORT INFORMATION
  Report Type: Spontaneous
  Country: US (occurrence: US)
  Receive Date: 20220806
  Receipt Date: 20250527
  Transmission Date: 20250717
  Serious: Yes (Hospitalization, Other)
  Sender: SANOFI AVENTIS
  Company Number: US-SA-SAC20220801000007

PATIENT
  Age: 40 Year
  Sex: Female

DRUGS (2)
  1. DUPIXENT [Suspect]
     Active Substance: DUPILUMAB
     Indication: Dermatitis atopic
     Dosage: 300 MG, QOW
     Route: 058
     Dates: start: 202207
  2. DUPIXENT [Suspect]
     Active Substance: DUPILUMAB
     Indication: Dermatitis atopic
     Dosage: 300 MG, QOW
     Route: 058

REACTIONS (8)
  - Pneumonia [Unknown]
  - Cellulitis [Unknown]
  - Rebound atopic dermatitis [Unknown]
  - Nervousness [Unknown]
  - Asthenia [Unknown]
  - Immune system disorder [Unknown]
  - Urinary tract infection [Unknown]
  - Intercepted product dispensing error [Unknown]

NARRATIVE: CASE EVENT DATE: 20220706
